FAERS Safety Report 8124321-4 (Version None)
Quarter: 2012Q1

REPORT INFORMATION
  Report Type: 
  Country: None (occurrence: None)
  Receive Date: 20120209
  Receipt Date: 20120201
  Transmission Date: 20120608
  Serious: Yes (Other)
  Sender: FDA-Public Use
  Company Number: US-JNJFOC-20120201756

PATIENT
  Sex: Female
  Weight: 48.54 kg

DRUGS (2)
  1. REMICADE [Suspect]
     Indication: RHEUMATOID ARTHRITIS
     Route: 042
     Dates: start: 20100101, end: 20120124
  2. REMICADE [Suspect]
     Route: 042
     Dates: start: 20120124

REACTIONS (2)
  - DRUG EFFECT DECREASED [None]
  - DYSTONIA [None]
